FAERS Safety Report 8362407-X (Version None)
Quarter: 2012Q2

REPORT INFORMATION
  Report Type: 
  Country: None (occurrence: None)
  Receive Date: 20120516
  Receipt Date: 20120508
  Transmission Date: 20120825
  Serious: No
  Sender: FDA-Public Use
  Company Number: US-BIOGENIDEC-2012BI016459

PATIENT
  Age: 60 Year
  Sex: Male

DRUGS (2)
  1. TYSABRI [Suspect]
     Indication: MULTIPLE SCLEROSIS
     Route: 042
     Dates: start: 20101209, end: 20120202
  2. TYSABRI [Suspect]
     Route: 042
     Dates: start: 20120202

REACTIONS (5)
  - ANTIBODY TEST POSITIVE [None]
  - TREMOR [None]
  - MUSCLE SPASTICITY [None]
  - DYSARTHRIA [None]
  - MUSCULOSKELETAL DISORDER [None]
